FAERS Safety Report 19031891 (Version 4)
Quarter: 2022Q4

REPORT INFORMATION
  Report Type: Spontaneous
  Country: US (occurrence: US)
  Receive Date: 20210319
  Receipt Date: 20221025
  Transmission Date: 20230112
  Serious: No
  Sender: FDA-Public Use
  Company Number: US-SA-SAC20210316000124

PATIENT
  Age: 19 Year
  Sex: Female
  Weight: 92.971 kg

DRUGS (2)
  1. CEREZYME [Suspect]
     Active Substance: IMIGLUCERASE
     Indication: Gaucher^s disease
     Dosage: 4800 MG, QOW
     Route: 042
     Dates: start: 20200924
  2. CEREZYME [Suspect]
     Active Substance: IMIGLUCERASE
     Dosage: 5200 U, QOW
     Route: 042
     Dates: start: 20210731

REACTIONS (3)
  - Weight decreased [Unknown]
  - Device malfunction [Unknown]
  - Weight increased [Unknown]
